FAERS Safety Report 4380826-3 (Version None)
Quarter: 2004Q2

REPORT INFORMATION
  Report Type: 
  Country: None (occurrence: None)
  Receive Date: 20040616
  Receipt Date: 20040610
  Transmission Date: 20050107
  Serious: Yes (Other)
  Sender: FDA-Public Use
  Company Number: ZANA001317

PATIENT
  Age: 52 Year
  Sex: Female

DRUGS (2)
  1. TIZANIDINE HCL [Suspect]
     Indication: MUSCLE SPASTICITY
     Dosage: 12 MG DAILY ORAL
     Route: 048
     Dates: start: 20030701, end: 20040301
  2. MERCURIUS SOLUTION (MERCUROUS NITRATE) [Concomitant]

REACTIONS (3)
  - ALPHA 1 FOETOPROTEIN INCREASED [None]
  - HEPATITIS [None]
  - SERUM FERRITIN INCREASED [None]
